FAERS Safety Report 19031494 (Version 1)
Quarter: 2021Q1

REPORT INFORMATION
  Report Type: Spontaneous
  Country: GB (occurrence: US)
  Receive Date: 20210319
  Receipt Date: 20210319
  Transmission Date: 20210420
  Serious: No
  Sender: FDA-Public Use
  Company Number: GB-VERTEX PHARMACEUTICALS-2021-004300

PATIENT
  Age: 28 Year
  Sex: Female

DRUGS (1)
  1. TRIKAFTA [Suspect]
     Active Substance: ELEXACAFTOR\IVACAFTOR\TEZACAFTOR
     Indication: CYSTIC FIBROSIS
     Dosage: UNKNOWN
     Route: 048

REACTIONS (1)
  - Weight increased [Unknown]
